FAERS Safety Report 14671526 (Version 2)
Quarter: 2018Q2

REPORT INFORMATION
  Report Type: Report from Study
  Country: ES (occurrence: ES)
  Receive Date: 20180323
  Receipt Date: 20180509
  Transmission Date: 20180711
  Serious: Yes (Death)
  Sender: FDA-Public Use
  Company Number: ES-ROCHE-2036616

PATIENT
  Age: 67 Year
  Sex: Male

DRUGS (1)
  1. ATEZOLIZUMAB. [Suspect]
     Active Substance: ATEZOLIZUMAB
     Indication: BLADDER TRANSITIONAL CELL CARCINOMA
     Route: 042
     Dates: start: 20170711, end: 20180213

REACTIONS (4)
  - Cardio-respiratory arrest [Fatal]
  - Acute kidney injury [Fatal]
  - Influenza [Unknown]
  - Catarrh [Unknown]

NARRATIVE: CASE EVENT DATE: 20180223
